FAERS Safety Report 6123444-9 (Version None)
Quarter: 2009Q1

REPORT INFORMATION
  Report Type: 
  Country: None (occurrence: None)
  Receive Date: 20090318
  Receipt Date: 20090310
  Transmission Date: 20090719
  Serious: No
  Sender: FDA-Public Use
  Company Number: US-B.I. PHARMACEUTICALS,INC./RIDGEFIELD-2009-BP-02980BP

PATIENT
  Age: 70 Year
  Sex: Female

DRUGS (4)
  1. MICARDIS [Suspect]
     Indication: HYPERTENSION
     Dosage: 80MG
     Route: 048
     Dates: start: 20090217
  2. BYSTOLIC [Suspect]
     Indication: HYPERTENSION
  3. DILTIAZEM [Concomitant]
     Indication: HYPERTENSION
  4. MICARDIS [Concomitant]

REACTIONS (2)
  - PRURITUS [None]
  - RASH [None]
